FAERS Safety Report 17759761 (Version 2)
Quarter: 2020Q2

REPORT INFORMATION
  Report Type: Report from Study
  Country: GB (occurrence: GB)
  Receive Date: 20200508
  Receipt Date: 20200512
  Transmission Date: 20200714
  Serious: Yes (Other)
  Sender: FDA-Public Use
  Company Number: GB-PFIZER INC-2020178711

PATIENT
  Age: 4 Year
  Sex: Female

DRUGS (4)
  1. VINCRISTINE SULFATE. [Suspect]
     Active Substance: VINCRISTINE SULFATE
     Indication: PLEUROPULMONARY BLASTOMA
     Dosage: UNK, WEEKLY
     Route: 065
  2. DOXORUBICIN HCL [Suspect]
     Active Substance: DOXORUBICIN HYDROCHLORIDE
     Indication: PLEUROPULMONARY BLASTOMA
     Dosage: UNK, CYCLIC (EVERY 3 WEEKS)
  3. IFOSFAMIDE. [Suspect]
     Active Substance: IFOSFAMIDE
     Indication: PLEUROPULMONARY BLASTOMA
     Dosage: UNK, CYCLIC (EVERY 3 WEEKS)
     Route: 065
  4. ACTINOMYCIN D [Suspect]
     Active Substance: DACTINOMYCIN
     Indication: PLEUROPULMONARY BLASTOMA
     Dosage: UNK, CYCLIC (EVERY 3 WEEKS)
     Route: 065

REACTIONS (2)
  - Thrombocytopenia [Unknown]
  - Neutropenic sepsis [Unknown]
